FAERS Safety Report 5302201-7 (Version None)
Quarter: 2007Q2

REPORT INFORMATION
  Report Type: 
  Country: None (occurrence: None)
  Receive Date: 20070419
  Receipt Date: 20070418
  Transmission Date: 20071010
  Serious: Yes (Other)
  Sender: FDA-Public Use
  Company Number: US-BRISTOL-MYERS SQUIBB COMPANY-13626502

PATIENT
  Age: 47 Year
  Sex: Male
  Weight: 57 kg

DRUGS (7)
  1. REYATAZ [Suspect]
     Indication: HIV INFECTION
     Route: 048
     Dates: start: 20040401
  2. VIREAD [Suspect]
     Indication: HIV INFECTION
     Dates: start: 20040401
  3. RITONAVIR [Suspect]
     Indication: HIV INFECTION
     Dates: start: 20040401, end: 20041201
  4. GLYBURIDE [Concomitant]
  5. URSODIOL [Concomitant]
     Dates: start: 20060615
  6. NADOLOL [Concomitant]
     Dates: start: 20070107
  7. PRILOSEC [Concomitant]
     Dates: start: 20070107

REACTIONS (1)
  - HEPATITIS CHOLESTATIC [None]
